FAERS Safety Report 24226477 (Version 1)
Quarter: 2024Q3

REPORT INFORMATION
  Report Type: Spontaneous
  Country: AU (occurrence: AU)
  Receive Date: 20240820
  Receipt Date: 20240820
  Transmission Date: 20241016
  Serious: Yes (Life-Threatening, Hospitalization, Other)
  Sender: MERCK
  Company Number: AU-009507513-1908AUS002472

PATIENT
  Age: 26 Year
  Sex: Male
  Weight: 85 kg

DRUGS (6)
  1. BRIDION [Suspect]
     Active Substance: SUGAMMADEX
     Indication: Neuromuscular blockade reversal
     Dosage: 2 MILLIGRAM/KILOGRAM
     Route: 042
     Dates: start: 20180831
  2. KETAMINE [Concomitant]
     Active Substance: KETAMINE
     Dosage: UNK
     Dates: start: 20180831
  3. POVIDONE-IODINE [Concomitant]
     Active Substance: POVIDONE-IODINE
     Dosage: UNK
     Dates: start: 20180831
  4. ROPIVACAINE [Concomitant]
     Active Substance: ROPIVACAINE
     Indication: Nerve block
     Dosage: UNK
     Dates: start: 20180831
  5. CHLORHEXIDINE [Concomitant]
     Active Substance: CHLORHEXIDINE
     Dosage: UNK
     Route: 042
     Dates: start: 20180831
  6. IODINE [Concomitant]
     Active Substance: IODINE
     Indication: Infection prophylaxis
     Dosage: UNK
     Route: 042
     Dates: start: 20180831

REACTIONS (2)
  - Anaphylactic reaction [Recovered/Resolved]
  - Drug hypersensitivity [Unknown]

NARRATIVE: CASE EVENT DATE: 20180831
